FAERS Safety Report 13935477 (Version 1)
Quarter: 2017Q3

REPORT INFORMATION
  Report Type: Spontaneous
  Country: US (occurrence: US)
  Receive Date: 20170902
  Receipt Date: 20170902
  Transmission Date: 20171127
  Serious: No
  Sender: FDA-Public Use
  Company Number: None

PATIENT
  Age: 27 Year
  Sex: Female
  Weight: 95.85 kg

DRUGS (4)
  1. NUVARING [Suspect]
     Active Substance: ETHINYL ESTRADIOL\ETONOGESTREL
     Indication: CONTRACEPTION
     Dates: start: 20170201, end: 20170809
  2. PROBIOTIC [Concomitant]
     Active Substance: PROBIOTICS NOS
  3. WOMEN^S MULTI-VITAMINS [Concomitant]
  4. FIBER [Concomitant]
     Active Substance: PSYLLIUM HUSK

REACTIONS (3)
  - Cervix disorder [None]
  - Dyspareunia [None]
  - Libido decreased [None]

NARRATIVE: CASE EVENT DATE: 20170725
